FAERS Safety Report 10504580 (Version 2)
Quarter: 2014Q4

REPORT INFORMATION
  Report Type: Spontaneous
  Country: FR (occurrence: None)
  Receive Date: 20141006
  Receipt Date: 20141204
  Transmission Date: 20150528
  Serious: Yes (Hospitalization)
  Sender: FDA-Public Use
  Company Number: 2014FR0411

PATIENT
  Age: 8 Year
  Sex: Male

DRUGS (10)
  1. SPECIAFOLDINE (FOLIC ACID) (FOLIC ACID) [Concomitant]
  2. URSOLVAN (URSODEOXYCHOLIC ACID) [Concomitant]
  3. SODIUM CHLORIDE (SODIUM CHLORIDE) (SODIUM CHLORIDE) [Concomitant]
  4. VANCOMYCIN (VANCOMYCIN) (VANCOMYCIN) [Suspect]
     Active Substance: VANCOMYCIN
     Indication: STAPHYLOCOCCAL SEPSIS
     Dosage: 100 MG (800 MG, 1 IN 1 D), INTRAVENOUS?
     Route: 042
     Dates: start: 20140907, end: 20140909
  5. L-THYROXIN (LEVOTHYROXINE SODIUM) (LEVOTHROXINE SODIUM) [Concomitant]
  6. KINERET [Suspect]
     Active Substance: ANAKINRA
     Indication: AUTOINFLAMMATORY DISEASE
     Dosage: 100 MG (100 MG, 1 IN 1 D), SUBCUTANEOUS
     Route: 058
     Dates: start: 201403, end: 20140911
  7. SODIUM BICARBONATE (SODIUM BICARBONATE) (SODIUM BICARBONATE) [Concomitant]
  8. CLAFORAN (CEFOTAXIME SODIUM) (CEFOTAXINE SODIUM) [Concomitant]
  9. ZITHROMAX (AZITHROMYCIN) (AZITHROMYCIN) [Concomitant]
  10. SOLUPRED (PREDNISOLONE) (PREDNISOLONE) [Concomitant]

REACTIONS (3)
  - Staphylococcal sepsis [None]
  - Hepatitis [None]
  - Drug interaction [None]

NARRATIVE: CASE EVENT DATE: 20140906
